FAERS Safety Report 16940860 (Version 5)
Quarter: 2021Q1

REPORT INFORMATION
  Report Type: Spontaneous
  Country: US (occurrence: US)
  Receive Date: 20191021
  Receipt Date: 20210122
  Transmission Date: 20210419
  Serious: Yes (Hospitalization, Other)
  Sender: FDA-Public Use
  Company Number: US-AMNEAL PHARMACEUTICALS-2019-AMRX-02213

PATIENT
  Age: 51 Year
  Sex: Female

DRUGS (3)
  1. RYTARY [Suspect]
     Active Substance: CARBIDOPA\LEVODOPA
     Dosage: 1 CAPSULES, 6 /DAY (1 CAPSULE EVERY 3.5 TO 4 HOURS UP TO 6 TIMES DAILY)
     Route: 048
     Dates: start: 20200310
  2. RYTARY [Suspect]
     Active Substance: CARBIDOPA\LEVODOPA
     Dosage: 1 CAPSULES, 6 /DAY
     Route: 048
     Dates: end: 20200408
  3. RYTARY [Suspect]
     Active Substance: CARBIDOPA\LEVODOPA
     Indication: PARKINSON^S DISEASE
     Dosage: 1 CAPSULES, 5 /DAY EVERY 3.5 TO 4 HOURS
     Route: 048
     Dates: start: 2018

REACTIONS (3)
  - Therapy cessation [Not Recovered/Not Resolved]
  - Bacterial infection [Recovered/Resolved]
  - Anaemia [Recovering/Resolving]

NARRATIVE: CASE EVENT DATE: 20190912
